FAERS Safety Report 6123683-7 (Version None)
Quarter: 2009Q1

REPORT INFORMATION
  Report Type: 
  Country: None (occurrence: None)
  Receive Date: 20090318
  Receipt Date: 20090318
  Transmission Date: 20090719
  Serious: Yes (Hospitalization)
  Sender: FDA-Public Use
  Company Number: None

PATIENT
  Age: 63 Year
  Sex: Male
  Weight: 89.5 kg

DRUGS (1)
  1. PHENYTOIN [Suspect]
     Dosage: 300 MG OTHER PO
     Route: 048
     Dates: start: 20080414, end: 20081014

REACTIONS (3)
  - ASTHENIA [None]
  - LETHARGY [None]
  - SOMNOLENCE [None]
